FAERS Safety Report 21994758 (Version 1)
Quarter: 2023Q1

REPORT INFORMATION
  Report Type: Spontaneous
  Country: BR (occurrence: BR)
  Receive Date: 20230215
  Receipt Date: 20230215
  Transmission Date: 20230418
  Serious: Yes (Other)
  Sender: FDA-Public Use
  Company Number: BR-TAKEDA-2023TUS015200

PATIENT
  Age: 31 Year
  Sex: Female

DRUGS (9)
  1. PANTOPRAZOLE [Suspect]
     Active Substance: PANTOPRAZOLE
     Dosage: UNK
     Route: 065
  2. ENTYVIO [Suspect]
     Active Substance: VEDOLIZUMAB
     Indication: Crohn^s disease
     Dosage: UNK
     Route: 065
     Dates: start: 2016, end: 2017
  3. VONOPRAZAN FUMARATE [Suspect]
     Active Substance: VONOPRAZAN FUMARATE
     Dosage: 20 MILLIGRAM
     Route: 065
  4. STELARA [Concomitant]
     Active Substance: USTEKINUMAB
     Dosage: UNK
  5. OMEPRAZOLE [Concomitant]
     Active Substance: OMEPRAZOLE
     Dosage: UNK
  6. ESOMEPRAZOLE MAGNESIUM [Concomitant]
     Active Substance: ESOMEPRAZOLE MAGNESIUM
     Dosage: UNK
  7. NEXIUM [Concomitant]
     Active Substance: ESOMEPRAZOLE MAGNESIUM
     Dosage: UNK
  8. USTEKINUMAB [Concomitant]
     Active Substance: USTEKINUMAB
     Dosage: 90 MILLIGRAM, Q8WEEKS
     Route: 058
     Dates: start: 201711
  9. IRON POLYMALTOSE [Concomitant]
     Active Substance: IRON POLYMALTOSE
     Dosage: UNK

REACTIONS (17)
  - Intestinal stenosis [Unknown]
  - Tuberculosis liver [Unknown]
  - Spleen tuberculosis [Unknown]
  - Clostridial infection [Unknown]
  - Ileal stenosis [Unknown]
  - Hepatosplenic abscess [Unknown]
  - Malabsorption [Unknown]
  - Decreased immune responsiveness [Unknown]
  - Pain [Unknown]
  - Anaemia [Unknown]
  - Asthenia [Unknown]
  - Alopecia [Unknown]
  - Memory impairment [Unknown]
  - Pallor [Unknown]
  - Hypersensitivity [Unknown]
  - Rash [Unknown]
  - Pruritus [Unknown]
